FAERS Safety Report 4346137-7 (Version None)
Quarter: 2004Q1

REPORT INFORMATION
  Report Type: 
  Country: None (occurrence: None)
  Receive Date: 20040325
  Receipt Date: 20040203
  Transmission Date: 20041129
  Serious: No
  Sender: FDA-Public Use
  Company Number: USA040156225

PATIENT
  Age: 90 Year
  Sex: Female

DRUGS (5)
  1. FORTEO [Suspect]
     Indication: LUMBAR VERTEBRAL FRACTURE
     Dosage: 20 UG/DAY
     Dates: start: 20030930
  2. ALLEGRA (FEXOFENADINE HYDROCHLORDE) [Concomitant]
  3. THYROID TAB [Concomitant]
  4. POTASSIUM [Concomitant]
  5. LEXAPRO [Concomitant]

REACTIONS (2)
  - INJECTION SITE HAEMORRHAGE [None]
  - VISUAL ACUITY REDUCED [None]
